FAERS Safety Report 5907060-7 (Version None)
Quarter: 2008Q4

REPORT INFORMATION
  Report Type: 
  Country: None (occurrence: None)
  Receive Date: 20081002
  Receipt Date: 20081002
  Transmission Date: 20090506
  Serious: Yes (Life-Threatening)
  Sender: FDA-Public Use
  Company Number: None

PATIENT
  Age: 74 Year
  Weight: 106.1417 kg

DRUGS (1)
  1. RESCON JR TABLETS SR [Suspect]
     Indication: SINUSITIS
     Dosage: 1 TABLET TWICE DAY
     Dates: start: 20080916

REACTIONS (3)
  - EYE SWELLING [None]
  - RASH [None]
  - TONGUE DISORDER [None]
